FAERS Safety Report 10569034 (Version 3)
Quarter: 2014Q4

REPORT INFORMATION
  Report Type: Spontaneous
  Country: JP (occurrence: JP)
  Receive Date: 20141106
  Receipt Date: 20141218
  Transmission Date: 20150529
  Serious: Yes (Other)
  Sender: FDA-Public Use
  Company Number: JP-GILEAD-2014-0121243

PATIENT
  Age: 70 Year
  Sex: Male

DRUGS (3)
  1. HEPSERA [Suspect]
     Active Substance: ADEFOVIR DIPIVOXIL
     Indication: CHRONIC HEPATITIS B
     Dosage: 10 MG, QOD
     Route: 048
     Dates: start: 20141022, end: 2014
  2. HEPSERA [Suspect]
     Active Substance: ADEFOVIR DIPIVOXIL
     Dosage: 10 MG, QD
     Route: 048
     Dates: start: 20070501, end: 20141021
  3. ZEFIX [Concomitant]
     Active Substance: LAMIVUDINE
     Indication: PRODUCT USED FOR UNKNOWN INDICATION
     Dosage: 100 MG, QD
     Route: 065
     Dates: start: 20050222

REACTIONS (2)
  - Bone fissure [Recovering/Resolving]
  - Blood phosphorus decreased [Recovered/Resolved]

NARRATIVE: CASE EVENT DATE: 20141022
